FAERS Safety Report 9868962 (Version 2)
Quarter: 2014Q1

REPORT INFORMATION
  Report Type: Spontaneous
  Country: US (occurrence: US)
  Receive Date: 20140205
  Receipt Date: 20140205
  Transmission Date: 20141002
  Serious: Yes (Other)
  Sender: FDA-Public Use
  Company Number: US-ROCHE-1342189

PATIENT
  Sex: Female

DRUGS (1)
  1. HERCEPTIN [Suspect]
     Indication: BREAST CANCER
     Route: 042

REACTIONS (2)
  - Tachycardia [Unknown]
  - Electrocardiogram QT prolonged [Unknown]
